FAERS Safety Report 9181054 (Version 1)
Quarter: 2013Q1

REPORT INFORMATION
  Report Type: Spontaneous
  Country: US (occurrence: US)
  Receive Date: 20130322
  Receipt Date: 20130322
  Transmission Date: 20140127
  Serious: Yes (Other)
  Sender: FDA-Public Use
  Company Number: US-BAYER-2013-033265

PATIENT
  Age: 44 Year
  Sex: Female
  Weight: 78.91 kg

DRUGS (9)
  1. OCELLA [Suspect]
  2. YASMIN [Suspect]
  3. HYDROCODONE W/APAP [Concomitant]
     Dosage: 5 - 325
     Route: 048
     Dates: start: 20100307
  4. MAXALT [Concomitant]
     Dosage: 10 MG, UNK
     Dates: start: 20051227, end: 20100513
  5. BUPROPION [Concomitant]
     Dosage: 150 MG, UNK
     Route: 048
     Dates: start: 20051210, end: 20100502
  6. SYMBICORT [Concomitant]
     Dosage: UNK
     Dates: start: 20100302
  7. PREVALITE [COLESTYRAMINE,PHENYLALANINE] [Concomitant]
     Dosage: UNK
     Dates: start: 20100302
  8. ALBUTEROL [Concomitant]
     Dosage: UNK
     Dates: start: 20100302
  9. VENTOLIN [Concomitant]
     Dosage: UNK
     Dates: start: 20100302

REACTIONS (1)
  - Deep vein thrombosis [Recovering/Resolving]
